FAERS Safety Report 8617176-2 (Version None)
Quarter: 2012Q3

REPORT INFORMATION
  Report Type: 
  Country: None (occurrence: None)
  Receive Date: 20120823
  Receipt Date: 20120817
  Transmission Date: 20120928
  Serious: Yes (Hospitalization)
  Sender: FDA-Public Use
  Company Number: BR-ABBOTT-12P-020-0969796-00

PATIENT
  Sex: Female
  Weight: 68 kg

DRUGS (4)
  1. HUMIRA [Suspect]
     Indication: RHEUMATOID ARTHRITIS
     Route: 058
     Dates: start: 20100101
  2. SPIRONOLACTONE [Concomitant]
     Indication: CARDIAC DISORDER
     Route: 048
     Dates: start: 20120701
  3. WARFARIN SODIUM [Concomitant]
     Indication: CARDIAC DISORDER
     Route: 048
     Dates: start: 20110101
  4. CARVEDILOL [Concomitant]
     Indication: CARDIAC DISORDER
     Route: 048
     Dates: start: 20120701

REACTIONS (3)
  - ATRIAL FIBRILLATION [None]
  - CORONARY ARTERY EMBOLISM [None]
  - PLEURAL EFFUSION [None]
